FAERS Safety Report 8912063 (Version 1)
Quarter: 2012Q4

REPORT INFORMATION
  Report Type: 
  Country: FR (occurrence: FR)
  Receive Date: 20121116
  Receipt Date: 20121116
  Transmission Date: 20130627
  Serious: Yes (Hospitalization)
  Sender: FDA-Public Use
  Company Number: FR-TEVA-368562ISR

PATIENT
  Age: 83 Year
  Sex: Male

DRUGS (4)
  1. OXALIPLATINE [Suspect]
     Indication: RECTAL CANCER
     Dosage: 460 Milligram Daily;
     Route: 042
     Dates: start: 20120606, end: 20120606
  2. LEVOFOLINATE CALCIUM [Suspect]
     Dosage: 320 Milligram Daily;
     Route: 042
     Dates: start: 20120606, end: 20120606
  3. METHYLPREDNISOLONE [Suspect]
     Dosage: 60  Daily;
     Route: 042
     Dates: start: 20120606, end: 20120606
  4. ZOPHREN [Suspect]
     Dosage: 4 mg/m2 Daily;
     Route: 042
     Dates: start: 20120606, end: 20120606

REACTIONS (3)
  - Paraesthesia [Recovered/Resolved]
  - Hypotension [Recovered/Resolved]
  - Hypothermia [Recovered/Resolved]
